FAERS Safety Report 5142260-8 (Version None)
Quarter: 2006Q4

REPORT INFORMATION
  Report Type: 
  Country: None (occurrence: None)
  Receive Date: 20061102
  Receipt Date: 20061027
  Transmission Date: 20070319
  Serious: Yes (Disabling)
  Sender: FDA-Public Use
  Company Number: GB-MERCK-0610GBR00523

PATIENT
  Age: 43 Year
  Weight: 100 kg

DRUGS (7)
  1. HYDROCORTONE [Suspect]
     Indication: HYPOPITUITARISM
     Route: 048
     Dates: start: 20060301, end: 20060501
  2. CARBAMAZEPINE [Concomitant]
     Indication: EPILEPSY
     Route: 048
  3. DIAZEPAM [Concomitant]
     Indication: EPILEPSY
     Route: 048
  4. LEVETIRACETAM [Concomitant]
     Indication: EPILEPSY
     Route: 048
  5. PHENYTOIN SODIUM [Concomitant]
     Indication: EPILEPSY
     Route: 048
  6. SULPIRIDE [Concomitant]
     Indication: SCHIZOPHRENIA
     Route: 048
  7. TOPIRAMATE [Concomitant]
     Indication: EPILEPSY
     Route: 048

REACTIONS (5)
  - DELUSION [None]
  - HALLUCINATION, AUDITORY [None]
  - IRRITABILITY [None]
  - MUSCLE TWITCHING [None]
  - PSYCHOTIC DISORDER [None]
